FAERS Safety Report 6635687-6 (Version None)
Quarter: 2010Q1

REPORT INFORMATION
  Report Type: 
  Country: None (occurrence: None)
  Receive Date: 20100312
  Receipt Date: 20100312
  Transmission Date: 20100710
  Serious: Yes (Hospitalization)
  Sender: FDA-Public Use
  Company Number: None

PATIENT
  Sex: Female
  Weight: 67.27 kg

DRUGS (2)
  1. CARBOPLATIN [Suspect]
     Dosage: 447 MG
  2. TAXOL [Suspect]
     Dosage: 287 MG

REACTIONS (6)
  - BLOOD BICARBONATE INCREASED [None]
  - BLOOD CHLORIDE DECREASED [None]
  - BLOOD POTASSIUM DECREASED [None]
  - DIARRHOEA [None]
  - NAUSEA [None]
  - VOMITING [None]
